FAERS Safety Report 22114293 (Version 4)
Quarter: 2023Q2

REPORT INFORMATION
  Report Type: Report from Study
  Country: US (occurrence: US)
  Receive Date: 20230320
  Receipt Date: 20230414
  Transmission Date: 20230721
  Serious: Yes (Hospitalization, Other)
  Sender: FDA-Public Use
  Company Number: US-TAKEDA-2023TUS027692

PATIENT
  Sex: Male

DRUGS (2)
  1. VEDOLIZUMAB [Suspect]
     Active Substance: VEDOLIZUMAB
     Indication: Crohn^s disease
     Dosage: 300 MILLIGRAM
     Route: 042
  2. VEDOLIZUMAB [Suspect]
     Active Substance: VEDOLIZUMAB
     Dosage: 300 MILLIGRAM, Q4WEEKS
     Route: 042

REACTIONS (11)
  - Internal haemorrhage [Unknown]
  - Crohn^s disease [Unknown]
  - Electrolyte imbalance [Unknown]
  - Iron deficiency anaemia [Unknown]
  - Malabsorption [Unknown]
  - Parkinson^s disease [Unknown]
  - Prostate cancer [Unknown]
  - Blood phosphorus decreased [Unknown]
  - Osteoporosis [Unknown]
  - Drug level decreased [Unknown]
  - Off label use [Unknown]
